FAERS Safety Report 8897420 (Version 1)
Quarter: 2012Q4

REPORT INFORMATION
  Report Type: 
  Country: US (occurrence: US)
  Receive Date: 20121108
  Receipt Date: 20121108
  Transmission Date: 20130627
  Serious: No
  Sender: FDA-Public Use
  Company Number: US-AMGEN-USASP2012025826

PATIENT
  Age: 75 Year
  Sex: Female
  Weight: 54.42 kg

DRUGS (4)
  1. ENBREL [Suspect]
     Indication: RHEUMATOID ARTHRITIS
     Dosage: 50 mg, UNK
     Route: 058
  2. BENICAR [Concomitant]
     Dosage: 20 mg, UNK
     Route: 048
  3. CALCIUM [Concomitant]
     Dosage: UNK
     Route: 048
  4. MULTIVITAMIN                       /00831701/ [Concomitant]
     Dosage: UNK
     Route: 048

REACTIONS (1)
  - Upper respiratory tract infection [Recovered/Resolved]
